FAERS Safety Report 23235685 (Version 4)
Quarter: 2024Q2

REPORT INFORMATION
  Report Type: Spontaneous
  Country: US (occurrence: US)
  Receive Date: 20231128
  Receipt Date: 20240423
  Transmission Date: 20240716
  Serious: Yes (Other)
  Sender: FDA-Public Use
  Company Number: US-PFIZER INC-PV202300192261

PATIENT
  Age: 78 Year
  Sex: Female
  Weight: 83.447 kg

DRUGS (4)
  1. IBRANCE [Suspect]
     Active Substance: PALBOCICLIB
     Indication: Breast cancer stage IV
     Dosage: UNK
  2. IBRANCE [Suspect]
     Active Substance: PALBOCICLIB
     Dosage: 75 MG ONCE A DAY FOR 21 DAYS 7 DAYS OFF
     Dates: start: 202207
  3. FASLODEX [Concomitant]
     Active Substance: FULVESTRANT
     Dosage: 500 MG SHOT ONCE A MONTH
     Dates: start: 202207
  4. XGEVA [Concomitant]
     Active Substance: DENOSUMAB
     Dosage: 120 MG SHOT ONCE A MONTH
     Dates: start: 202207

REACTIONS (2)
  - Neutropenia [Not Recovered/Not Resolved]
  - Alopecia [Not Recovered/Not Resolved]

NARRATIVE: CASE EVENT DATE: 20220701
